FAERS Safety Report 19815985 (Version 2)
Quarter: 2021Q3

REPORT INFORMATION
  Report Type: Report from Study
  Country: TW (occurrence: TW)
  Receive Date: 20210910
  Receipt Date: 20210923
  Transmission Date: 20211014
  Serious: Yes (Hospitalization)
  Sender: FDA-Public Use
  Company Number: TW-EMD SERONO-9263473

PATIENT
  Age: 58 Year
  Sex: Female

DRUGS (4)
  1. MAVENCLAD [Suspect]
     Active Substance: CLADRIBINE
     Indication: MULTIPLE SCLEROSIS
     Dosage: YEAR ONE WEEK ONE THERAPY
     Route: 048
     Dates: start: 20200212, end: 20200216
  2. MAVENCLAD [Suspect]
     Active Substance: CLADRIBINE
     Dosage: YEAR TWO WEEK TWO THERAPY
     Route: 048
     Dates: start: 20210421, end: 20210425
  3. MAVENCLAD [Suspect]
     Active Substance: CLADRIBINE
     Dosage: YEAR TWO WEEK ONE THERAPY
     Route: 048
     Dates: start: 20210322, end: 20210326
  4. MAVENCLAD [Suspect]
     Active Substance: CLADRIBINE
     Dosage: YEAR ONE WEEK TWO THERAPY
     Route: 048
     Dates: start: 20200311, end: 20200315

REACTIONS (5)
  - Slow response to stimuli [Unknown]
  - Peripheral coldness [Unknown]
  - Temperature intolerance [Unknown]
  - Dysphagia [Unknown]
  - Cold sweat [Unknown]

NARRATIVE: CASE EVENT DATE: 2021
